FAERS Safety Report 6659734-0 (Version None)
Quarter: 2010Q1

REPORT INFORMATION
  Report Type: 
  Country: None (occurrence: None)
  Receive Date: 20100325
  Receipt Date: 20100312
  Transmission Date: 20100710
  Serious: Yes (Hospitalization)
  Sender: FDA-Public Use
  Company Number: 1000012631

PATIENT
  Age: 86 Year
  Sex: Female

DRUGS (7)
  1. ESCITALOPRAM [Suspect]
     Dates: end: 20090812
  2. ALDALIX [Suspect]
     Dosage: 1 DOSAGE FORMS (1 DOSAGE FORMS, 1 IN 1 D), ORAL
     Route: 048
     Dates: end: 20090812
  3. DIFFU K [Suspect]
     Dosage: ORAL
     Route: 048
     Dates: end: 20090812
  4. TRIVASTAL [Concomitant]
  5. KARDEGIC [Concomitant]
  6. DAFALGAN [Concomitant]
  7. .. [Concomitant]

REACTIONS (3)
  - ELECTROLYTE IMBALANCE [None]
  - HYPERKALAEMIA [None]
  - HYPONATRAEMIA [None]
